FAERS Safety Report 20392397 (Version 1)
Quarter: 2022Q1

REPORT INFORMATION
  Report Type: Spontaneous
  Country: KR (occurrence: KR)
  Receive Date: 20220128
  Receipt Date: 20220128
  Transmission Date: 20220423
  Serious: Yes (Other)
  Sender: FDA-Public Use
  Company Number: KR-ASTELLAS-2022US002740

PATIENT
  Age: 29 Year
  Sex: Female

DRUGS (1)
  1. TACROLIMUS [Suspect]
     Active Substance: TACROLIMUS
     Indication: Stem cell transplant
     Dosage: UNK UNK, UNKNOWN FREQ. (SIX MONTHS AGO)
     Route: 065

REACTIONS (5)
  - Pathogen resistance [Recovered/Resolved]
  - Staphylococcal sepsis [Recovered/Resolved]
  - Endocarditis staphylococcal [Recovered/Resolved]
  - Endocarditis [Recovered/Resolved]
  - Posterior reversible encephalopathy syndrome [Recovered/Resolved]
